FAERS Safety Report 6711578-7 (Version None)
Quarter: 2010Q2

REPORT INFORMATION
  Report Type: 
  Country: None (occurrence: None)
  Receive Date: 20100505
  Receipt Date: 20100423
  Transmission Date: 20101027
  Serious: Yes (Hospitalization, Other)
  Sender: FDA-Public Use
  Company Number: PHEH2009US10550

PATIENT
  Age: 58 Year
  Sex: Male

DRUGS (11)
  1. TASIGNA [Suspect]
     Indication: CHRONIC MYELOID LEUKAEMIA
     Dosage: 200 MG, BID
  2. COUMADIN [Concomitant]
     Indication: ATRIAL FIBRILLATION
     Dosage: 10 MG DAILY
  3. FLOMAX [Concomitant]
     Indication: BENIGN PROSTATIC HYPERPLASIA
     Dosage: 4 MG DAILY
  4. ZANTAC [Concomitant]
     Indication: GASTROOESOPHAGEAL REFLUX DISEASE
     Dosage: 150 MG DAILY
  5. MAGNESIUM [Concomitant]
     Dosage: 250 MG, BID
  6. POTASSIUM [Concomitant]
     Dosage: 20 MG, BID
  7. OXYCONTIN [Concomitant]
     Indication: BACK PAIN
     Dosage: 40 MG, BID
  8. LEVEMIR [Concomitant]
     Indication: DIABETES MELLITUS
     Dosage: 20 UNIT, HS
  9. BYSTOLIC [Concomitant]
     Dosage: 5 MG DAILY
  10. BUMETANIDE [Concomitant]
     Dosage: 1 MG, TID
  11. PLAVIX [Concomitant]
     Indication: CORONARY ARTERY DISEASE
     Dosage: 75 MG DAILY

REACTIONS (7)
  - ANGINA PECTORIS [None]
  - ATRIAL FIBRILLATION [None]
  - CARDIAC ABLATION [None]
  - CARDIAC FAILURE CONGESTIVE [None]
  - CARDIAC PACEMAKER INSERTION [None]
  - DYSPNOEA [None]
  - FLUID RETENTION [None]
